FAERS Safety Report 9273574 (Version 1)
Quarter: 2013Q2

REPORT INFORMATION
  Report Type: Spontaneous
  Country: US (occurrence: US)
  Receive Date: 20130506
  Receipt Date: 20130506
  Transmission Date: 20140414
  Serious: No
  Sender: FDA-Public Use
  Company Number: US-AMGEN-USASP2013025560

PATIENT
  Age: 31 Year
  Sex: Female
  Weight: 83.45 kg

DRUGS (8)
  1. ENBREL [Suspect]
     Indication: RHEUMATOID ARTHRITIS
     Dosage: UNK
     Dates: start: 200508, end: 2013
  2. ENBREL [Suspect]
     Indication: PSORIASIS
  3. HUMIRA [Concomitant]
     Indication: RHEUMATOID ARTHRITIS
     Dosage: 40 MG, UNK
     Dates: start: 200504, end: 200507
  4. HUMIRA [Concomitant]
     Indication: PSORIASIS
  5. ORENCIA [Concomitant]
     Dosage: UNK
  6. LEVOTHYROXINE [Concomitant]
     Indication: HYPOTHYROIDISM
     Dosage: UNK
  7. CEFTIN                             /00522802/ [Concomitant]
     Indication: PSORIASIS
     Dosage: UNK
  8. AXETIL [Concomitant]
     Indication: PSORIASIS
     Dosage: UNK

REACTIONS (1)
  - Pustular psoriasis [Unknown]
